FAERS Safety Report 6045705-4 (Version None)
Quarter: 2009Q1

REPORT INFORMATION
  Report Type: 
  Country: None (occurrence: None)
  Receive Date: 20090121
  Receipt Date: 20090113
  Transmission Date: 20090719
  Serious: Yes (Other)
  Sender: FDA-Public Use
  Company Number: BR-ABBOTT-08P-020-0481109-00

PATIENT
  Sex: Female

DRUGS (5)
  1. HUMIRA [Suspect]
     Indication: RHEUMATOID ARTHRITIS
     Route: 058
     Dates: start: 20051201, end: 20080901
  2. PRELONE [Concomitant]
     Indication: DRUG USE FOR UNKNOWN INDICATION
  3. MOICARD [Concomitant]
     Indication: DRUG USE FOR UNKNOWN INDICATION
  4. ARCOXIA [Concomitant]
     Indication: DRUG USE FOR UNKNOWN INDICATION
  5. UNKNOWN THERAPY [Concomitant]
     Indication: HYPERTENSION

REACTIONS (3)
  - HIP ARTHROPLASTY [None]
  - KNEE ARTHROPLASTY [None]
  - MUSCULOSKELETAL DISORDER [None]
